FAERS Safety Report 23503676 (Version 4)
Quarter: 2024Q1

REPORT INFORMATION
  Report Type: Spontaneous
  Country: FR (occurrence: FR)
  Receive Date: 20240209
  Receipt Date: 20240320
  Transmission Date: 20240410
  Serious: Yes (Congenital Anomaly, Other)
  Sender: FDA-Public Use
  Company Number: None

PATIENT
  Sex: Male

DRUGS (1)
  1. STELARA [Suspect]
     Active Substance: USTEKINUMAB
     Indication: Crohn^s disease
     Route: 064
     Dates: start: 20230115, end: 20230615

REACTIONS (4)
  - Porencephaly [Not Recovered/Not Resolved]
  - Congenital cerebral cyst [Not Recovered/Not Resolved]
  - Foetal exposure during pregnancy [Unknown]
  - Perinatal stroke [Not Recovered/Not Resolved]

NARRATIVE: CASE EVENT DATE: 20230906
